FAERS Safety Report 7471595-9 (Version None)
Quarter: 2011Q2

REPORT INFORMATION
  Report Type: 
  Country: None (occurrence: None)
  Receive Date: 20110511
  Receipt Date: 20110408
  Transmission Date: 20111010
  Serious: Yes (Hospitalization)
  Sender: FDA-Public Use
  Company Number: US-BAYER-201018996NA

PATIENT
  Age: 25 Year
  Sex: Female
  Weight: 63 kg

DRUGS (2)
  1. BENICAR [Concomitant]
     Dosage: UNK UNK, QD
     Route: 048
  2. YAZ [Suspect]
     Indication: PRODUCT USED FOR UNKNOWN INDICATION
     Dosage: AS USED DOSE: UNK
     Route: 048

REACTIONS (5)
  - SELF ESTEEM DECREASED [None]
  - CEREBROVASCULAR ACCIDENT [None]
  - AMNESIA [None]
  - APHASIA [None]
  - DEPRESSION [None]
